FAERS Safety Report 5593264-2 (Version None)
Quarter: 2008Q1

REPORT INFORMATION
  Report Type: 
  Country: None (occurrence: None)
  Receive Date: 20080115
  Receipt Date: 20080115
  Transmission Date: 20080703
  Serious: Yes (Hospitalization)
  Sender: FDA-Public Use
  Company Number: None

PATIENT
  Age: 56 Year
  Sex: Female
  Weight: 68.0396 kg

DRUGS (2)
  1. CLINDAMYCIN 300 MG [Suspect]
     Indication: INJECTION SITE ERYTHEMA
     Dosage: 300 MG Q 8 HOURS PO
     Route: 048
     Dates: start: 20071005, end: 20071009
  2. CLINDAMYCIN 300 MG [Suspect]
     Indication: PROPHYLAXIS
     Dosage: 300 MG Q 8 HOURS PO
     Route: 048
     Dates: start: 20071005, end: 20071009

REACTIONS (3)
  - CLOSTRIDIAL INFECTION [None]
  - DEHYDRATION [None]
  - RENAL IMPAIRMENT [None]
